FAERS Safety Report 22646849 (Version 4)
Quarter: 2023Q4

REPORT INFORMATION
  Report Type: Spontaneous
  Country: JP (occurrence: JP)
  Receive Date: 20230627
  Receipt Date: 20231121
  Transmission Date: 20240110
  Serious: Yes (Death, Other)
  Sender: FDA-Public Use
  Company Number: JP-MSD-2306JPN002857J

PATIENT
  Age: 62 Year
  Sex: Female

DRUGS (1)
  1. KEYTRUDA [Suspect]
     Active Substance: PEMBROLIZUMAB
     Indication: Hypopharyngeal cancer
     Dosage: UNK
     Route: 041

REACTIONS (8)
  - Malignant neoplasm progression [Fatal]
  - Immune-mediated pancytopenia [Unknown]
  - Renal impairment [Unknown]
  - Immune-mediated enterocolitis [Unknown]
  - Immune-mediated adrenal insufficiency [Unknown]
  - Arthralgia [Unknown]
  - Immune-mediated dermatitis [Unknown]
  - Pyrexia [Unknown]

NARRATIVE: CASE EVENT DATE: 20221001
